FAERS Safety Report 11225328 (Version 1)
Quarter: 2015Q2

REPORT INFORMATION
  Report Type: Report from Study
  Country: JP (occurrence: JP)
  Receive Date: 20150629
  Receipt Date: 20150629
  Transmission Date: 20150821
  Serious: Yes (Other)
  Sender: FDA-Public Use
  Company Number: JP-BAYER-2015-361872

PATIENT
  Age: 75 Year
  Sex: Male

DRUGS (2)
  1. TICLOPIDIN [Concomitant]
     Active Substance: TICLOPIDINE
     Indication: ANTICOAGULANT THERAPY
  2. ACETYLSALICYLIC ACID({=100 MG) [Suspect]
     Active Substance: ASPIRIN
     Indication: ANGINA PECTORIS

REACTIONS (1)
  - Gastric ulcer [None]
